FAERS Safety Report 17560369 (Version 1)
Quarter: 2020Q1

REPORT INFORMATION
  Report Type: Spontaneous
  Country: US (occurrence: US)
  Receive Date: 20200319
  Receipt Date: 20200319
  Transmission Date: 20200409
  Serious: Yes (Other)
  Sender: FDA-Public Use
  Company Number: US-JNJFOC-20200309988

PATIENT
  Age: 81 Year
  Sex: Female
  Weight: 106.24 kg

DRUGS (13)
  1. XARELTO [Suspect]
     Active Substance: RIVAROXABAN
     Indication: CEREBROVASCULAR ACCIDENT PROPHYLAXIS
     Route: 048
  2. OXYBUTYNIN                         /00538902/ [Concomitant]
     Active Substance: OXYBUTYNIN CHLORIDE
     Route: 048
  3. ATORVASTATIN [Concomitant]
     Active Substance: ATORVASTATIN
     Indication: BLOOD CHOLESTEROL INCREASED
     Route: 048
  4. ISOSORBIDE MONONITRATE. [Concomitant]
     Active Substance: ISOSORBIDE MONONITRATE
     Route: 048
  5. VITAMIN B12 [Concomitant]
     Active Substance: CYANOCOBALAMIN
     Route: 048
  6. HYDROCHLOROTHIAZIDE. [Concomitant]
     Active Substance: HYDROCHLOROTHIAZIDE
     Indication: HYPERTENSION
     Route: 048
     Dates: end: 20200304
  7. KCL [Concomitant]
     Active Substance: POTASSIUM CHLORIDE
     Indication: HYPERTENSION
     Route: 048
     Dates: end: 20200304
  8. LOSARTAN. [Concomitant]
     Active Substance: LOSARTAN
     Indication: HYPERTENSION
     Route: 048
  9. METOPROLOL. [Concomitant]
     Active Substance: METOPROLOL
     Route: 048
  10. XARELTO [Suspect]
     Active Substance: RIVAROXABAN
     Indication: ATRIAL FIBRILLATION
  11. LEVOTHYROXINE. [Concomitant]
     Active Substance: LEVOTHYROXINE
     Indication: THYROID THERAPY
     Route: 048
  12. LEVOTHYROXINE. [Concomitant]
     Active Substance: LEVOTHYROXINE
     Indication: THYROIDECTOMY
  13. VITAMIN D [Concomitant]
     Active Substance: VITAMIN D NOS
     Route: 048

REACTIONS (6)
  - Knee arthroplasty [Recovered/Resolved]
  - Hypotension [Unknown]
  - Muscular weakness [Unknown]
  - Fall [Not Recovered/Not Resolved]
  - Hypoacusis [Not Recovered/Not Resolved]
  - Contusion [Recovered/Resolved]

NARRATIVE: CASE EVENT DATE: 20200304
